FAERS Safety Report 7202049-2 (Version None)
Quarter: 2010Q4

REPORT INFORMATION
  Report Type: 
  Country: None (occurrence: None)
  Receive Date: 20101229
  Receipt Date: 20101202
  Transmission Date: 20110411
  Serious: Yes (Hospitalization)
  Sender: FDA-Public Use
  Company Number: US-BAYER-201025518NA

PATIENT
  Sex: Female
  Weight: 99.773 kg

DRUGS (3)
  1. YAZ [Suspect]
     Indication: CONTRACEPTION
     Route: 048
     Dates: start: 20040701
  2. YASMIN [Suspect]
     Indication: CONTRACEPTION
     Dosage: UNK UNK, QD
     Route: 048
     Dates: start: 20060426, end: 20060601
  3. UNCODEABLE ^UNCLASSIFIABLE^ [Concomitant]
     Indication: HEADACHE
     Dosage: UNK UNK, PRN

REACTIONS (5)
  - CHEST PAIN [None]
  - FLANK PAIN [None]
  - NAUSEA [None]
  - PLEURITIC PAIN [None]
  - PULMONARY EMBOLISM [None]
